FAERS Safety Report 8114962-2 (Version None)
Quarter: 2012Q1

REPORT INFORMATION
  Report Type: 
  Country: None (occurrence: None)
  Receive Date: 20120206
  Receipt Date: 20120131
  Transmission Date: 20120608
  Serious: Yes (Life-Threatening, Hospitalization, Other)
  Sender: FDA-Public Use
  Company Number: US-BRISTOL-MYERS SQUIBB COMPANY-16148504

PATIENT
  Age: 61 Year
  Sex: Male

DRUGS (5)
  1. OXYCODONE HCL [Concomitant]
  2. ALENDRONATE SODIUM [Concomitant]
  3. NAPROXEN [Concomitant]
  4. ORENCIA [Suspect]
     Indication: RHEUMATOID ARTHRITIS
     Dosage: RECEIVED ALL LOADING DOSES PLUS 2 ADDITIONAL TREATMENTS RESTART:12OCT11
     Route: 042
     Dates: start: 20110614
  5. SULFASALAZINE [Concomitant]

REACTIONS (2)
  - RESPIRATORY FAILURE [None]
  - PULMONARY EMBOLISM [None]
